FAERS Safety Report 4932971-9 (Version None)
Quarter: 2006Q1

REPORT INFORMATION
  Report Type: 
  Country: None (occurrence: None)
  Receive Date: 20060301
  Receipt Date: 20060301
  Transmission Date: 20060701
  Serious: Yes (Other)
  Sender: FDA-Public Use
  Company Number: None

PATIENT
  Sex: Female
  Weight: 78 kg

DRUGS (2)
  1. CYCLOPHOSPHAMIDE [Suspect]
     Indication: BREAST CANCER
     Dosage: 1080 MG
     Dates: start: 20051128, end: 20051128
  2. DOXORUBICIN HCL [Suspect]
     Dosage: 108 MG
     Dates: start: 20051128, end: 20051128

REACTIONS (1)
  - GASTROINTESTINAL TOXICITY [None]
